FAERS Safety Report 6657669-0 (Version None)
Quarter: 2010Q1

REPORT INFORMATION
  Report Type: 
  Country: None (occurrence: None)
  Receive Date: 20100330
  Receipt Date: 20100318
  Transmission Date: 20100710
  Serious: Yes (Hospitalization)
  Sender: FDA-Public Use
  Company Number: US-SANOFI-AVENTIS-2010SA017055

PATIENT
  Age: 65 Year
  Sex: Female

DRUGS (11)
  1. MULTAQ [Suspect]
     Indication: ATRIAL FIBRILLATION
     Route: 048
     Dates: start: 20090101, end: 20100201
  2. COUMADIN [Concomitant]
  3. KLOR-CON [Concomitant]
  4. ZAROXOLYN [Concomitant]
  5. SINGULAIR [Concomitant]
  6. FENOFIBRATE [Concomitant]
  7. VYTORIN [Concomitant]
  8. LISINOPRIL [Concomitant]
  9. METOPROLOL [Concomitant]
  10. ALDACTONE [Concomitant]
  11. ASPIRIN [Concomitant]

REACTIONS (3)
  - CARDIAC FAILURE CONGESTIVE [None]
  - FLUID RETENTION [None]
  - RASH [None]
